FAERS Safety Report 4714006-6 (Version None)
Quarter: 2005Q3

REPORT INFORMATION
  Report Type: 
  Country: None (occurrence: None)
  Receive Date: 20050712
  Receipt Date: 20050620
  Transmission Date: 20060218
  Serious: Yes (Other)
  Sender: FDA-Public Use
  Company Number: EWC050644534

PATIENT
  Age: 40 Year
  Sex: Female

DRUGS (5)
  1. CYMBALTA [Suspect]
     Indication: MAJOR DEPRESSION
     Dosage: 60 MG/1 DAY
     Dates: start: 20050301, end: 20050414
  2. LAMICITIN (LAMOTRIGINE) [Concomitant]
  3. TOPAMAX [Concomitant]
  4. RIVOTRIL (CLONAZEPAM) [Concomitant]
  5. CILIFT (CITALOPRAM [Concomitant]

REACTIONS (6)
  - APATHY [None]
  - BEDRIDDEN [None]
  - CONDITION AGGRAVATED [None]
  - DRUG INTERACTION [None]
  - EPILEPSY [None]
  - GRAND MAL CONVULSION [None]
